FAERS Safety Report 17849209 (Version 1)
Quarter: 2020Q2

REPORT INFORMATION
  Report Type: Spontaneous
  Country: US (occurrence: US)
  Receive Date: 20200601
  Receipt Date: 20200601
  Transmission Date: 20200714
  Serious: Yes (Other)
  Sender: FDA-Public Use
  Company Number: None

PATIENT
  Age: 80 Year
  Sex: Male
  Weight: 83.5 kg

DRUGS (11)
  1. VANCOMYCIN [Concomitant]
     Active Substance: VANCOMYCIN
     Dates: start: 20200530, end: 20200601
  2. CARVEDILOL. [Concomitant]
     Active Substance: CARVEDILOL
     Dates: start: 20200528
  3. AMLODIPINE [Concomitant]
     Active Substance: AMLODIPINE BESYLATE
     Dates: start: 20200528
  4. INSULIN LISPRO [Concomitant]
     Active Substance: INSULIN LISPRO
     Dates: start: 20200528
  5. LEVOTHYROXINE. [Concomitant]
     Active Substance: LEVOTHYROXINE
     Dates: start: 20200528
  6. WARFARIN [Concomitant]
     Active Substance: WARFARIN
     Dates: start: 20200528, end: 20200530
  7. PRAVASTATIN. [Concomitant]
     Active Substance: PRAVASTATIN
     Dates: start: 20200528
  8. TERAZOSIN [Concomitant]
     Active Substance: TERAZOSIN HYDROCHLORIDE
     Dates: start: 20200528
  9. ASPRIN [Concomitant]
     Active Substance: ASPIRIN
     Dates: start: 20200528
  10. INSULIN GLARGINE [Concomitant]
     Active Substance: INSULIN GLARGINE
     Dates: start: 20200528
  11. REMDESIVIR. [Suspect]
     Active Substance: REMDESIVIR
     Indication: COVID-19
     Route: 042

REACTIONS (6)
  - Blood culture positive [None]
  - Aspartate aminotransferase increased [None]
  - Alanine aminotransferase increased [None]
  - International normalised ratio increased [None]
  - Staphylococcal infection [None]
  - Acute kidney injury [None]

NARRATIVE: CASE EVENT DATE: 20200531
